FAERS Safety Report 8495930-8 (Version None)
Quarter: 2012Q3

REPORT INFORMATION
  Report Type: 
  Country: None (occurrence: None)
  Receive Date: 20120709
  Receipt Date: 20120629
  Transmission Date: 20120928
  Serious: Yes (Hospitalization)
  Sender: FDA-Public Use
  Company Number: US-GLAXOSMITHKLINE-A0889100A

PATIENT
  Age: 58 Year
  Sex: Male
  Weight: 79.5 kg

DRUGS (6)
  1. SULAR [Concomitant]
  2. AVANDAMET [Suspect]
     Indication: TYPE 2 DIABETES MELLITUS
     Dosage: 1TAB TWICE PER DAY
     Route: 048
     Dates: start: 20040218, end: 20050301
  3. HYZAAR [Concomitant]
  4. METOPROLOL [Concomitant]
  5. GLIPIZIDE [Concomitant]
  6. ZOCOR [Concomitant]

REACTIONS (4)
  - CEREBRAL INFARCTION [None]
  - TRANSIENT ISCHAEMIC ATTACK [None]
  - CEREBROVASCULAR ACCIDENT [None]
  - CARDIAC FAILURE CONGESTIVE [None]
